FAERS Safety Report 7198289-1 (Version None)
Quarter: 2010Q4

REPORT INFORMATION
  Report Type: 
  Country: None (occurrence: None)
  Receive Date: 20101227
  Receipt Date: 20101214
  Transmission Date: 20110411
  Serious: Yes (Other)
  Sender: FDA-Public Use
  Company Number: PHHY2010US87680

PATIENT
  Sex: Female
  Weight: 56.236 kg

DRUGS (2)
  1. GLEEVEC [Suspect]
     Dosage: 400 MG, QD
     Route: 048
     Dates: start: 20100710, end: 20101214
  2. ACETAMINOPHEN [Concomitant]

REACTIONS (2)
  - BONE MARROW FAILURE [None]
  - HAEMATOTOXICITY [None]
